FAERS Safety Report 7965562-6 (Version None)
Quarter: 2011Q4

REPORT INFORMATION
  Report Type: 
  Country: None (occurrence: None)
  Receive Date: 20111208
  Receipt Date: 20111201
  Transmission Date: 20120403
  Serious: Yes (Death)
  Sender: FDA-Public Use
  Company Number: ZA-MERCK-1110ZAF00031

PATIENT
  Sex: Male

DRUGS (1)
  1. CANCIDAS [Suspect]
     Indication: FUNGAL INFECTION
     Route: 042
     Dates: start: 20111025, end: 20111025

REACTIONS (4)
  - VOMITING [None]
  - DEATH [None]
  - BLOOD PRESSURE DECREASED [None]
  - HEART RATE DECREASED [None]
